FAERS Safety Report 5215337-6 (Version None)
Quarter: 2007Q1

REPORT INFORMATION
  Report Type: 
  Country: None (occurrence: None)
  Receive Date: 20070116
  Receipt Date: 20061228
  Transmission Date: 20070707
  Serious: Yes (Hospitalization)
  Sender: FDA-Public Use
  Company Number: S07-FRA-00093-01

PATIENT
  Age: 82 Year
  Sex: Female

DRUGS (3)
  1. MEMANTINE HCL [Suspect]
     Indication: DEMENTIA ALZHEIMER'S TYPE
     Dosage: 20 MG QD PO
     Route: 048
     Dates: start: 20060701
  2. LAMICTAL [Concomitant]
  3. DI-HYDAN (PHENYTOIN) [Concomitant]

REACTIONS (5)
  - CONDITION AGGRAVATED [None]
  - DEMENTIA ALZHEIMER'S TYPE [None]
  - DRY MOUTH [None]
  - EPILEPSY [None]
  - PARTIAL SEIZURES [None]
